FAERS Safety Report 13548322 (Version 2)
Quarter: 2017Q3

REPORT INFORMATION
  Report Type: Spontaneous
  Country: US (occurrence: US)
  Receive Date: 20170516
  Receipt Date: 20170727
  Transmission Date: 20171127
  Serious: No
  Sender: FDA-Public Use
  Company Number: US-JNJFOC-20170323545

PATIENT
  Sex: Female
  Weight: 52.16 kg

DRUGS (2)
  1. WOMENS ROGAINE UNSCENTED [Suspect]
     Active Substance: MINOXIDIL
     Route: 061
  2. WOMENS ROGAINE UNSCENTED [Suspect]
     Active Substance: MINOXIDIL
     Indication: ALOPECIA
     Dosage: HALF A CAPFUL AS DIRECTED
     Route: 061
     Dates: start: 20170226, end: 2017

REACTIONS (2)
  - Product formulation issue [Unknown]
  - Alopecia [Recovering/Resolving]
